FAERS Safety Report 6095837-X (Version None)
Quarter: 2009Q1

REPORT INFORMATION
  Report Type: 
  Country: None (occurrence: None)
  Receive Date: 20090227
  Receipt Date: 20080617
  Transmission Date: 20090719
  Serious: No
  Sender: FDA-Public Use
  Company Number: A0734596A

PATIENT
  Sex: Female

DRUGS (8)
  1. LAMICTAL [Suspect]
     Indication: DRUG USE FOR UNKNOWN INDICATION
     Route: 048
  2. TOPAMAX [Suspect]
  3. MULTI-VITAMINS [Concomitant]
  4. CALCIUM [Concomitant]
  5. FOLIC ACID [Concomitant]
  6. MILK THISTLE [Concomitant]
  7. MSM [Concomitant]
  8. SYNTHROID [Concomitant]

REACTIONS (3)
  - LIVER DISORDER [None]
  - THYROID DISORDER [None]
  - TOOTH INJURY [None]
